FAERS Safety Report 23019587 (Version 1)
Quarter: 2023Q4

REPORT INFORMATION
  Report Type: Spontaneous
  Country: US (occurrence: US)
  Receive Date: 20231003
  Receipt Date: 20231003
  Transmission Date: 20240110
  Serious: Yes (Life-Threatening, Other)
  Sender: FDA-Public Use
  Company Number: US-AMGEN-USASP2023171646

PATIENT

DRUGS (1)
  1. FILGRASTIM [Suspect]
     Active Substance: FILGRASTIM
     Indication: Prophylaxis
     Dosage: UNK
     Route: 065

REACTIONS (9)
  - Neutropenia [Unknown]
  - Febrile neutropenia [Unknown]
  - Herpes zoster [Unknown]
  - Sepsis [Unknown]
  - Vulvovaginal candidiasis [Unknown]
  - Oral candidiasis [Unknown]
  - Anal candidiasis [Unknown]
  - Infection [Unknown]
  - Inappropriate schedule of product administration [Unknown]
